FAERS Safety Report 6165276-1 (Version None)
Quarter: 2009Q2

REPORT INFORMATION
  Report Type: 
  Country: None (occurrence: None)
  Receive Date: 20090423
  Receipt Date: 20090420
  Transmission Date: 20091009
  Serious: Yes (Other)
  Sender: FDA-Public Use
  Company Number: B0557658A

PATIENT
  Sex: Male
  Weight: 21.7 kg

DRUGS (5)
  1. RELENZA [Suspect]
     Indication: INFLUENZA
     Dosage: 10MG TWICE PER DAY
     Route: 055
     Dates: start: 20090124, end: 20090128
  2. MUCODYNE [Suspect]
     Indication: COUGH
     Dosage: .63G THREE TIMES PER DAY
     Route: 048
     Dates: start: 20090123, end: 20090203
  3. ASVERIN [Suspect]
     Indication: COUGH
     Dosage: 11.6G THREE TIMES PER DAY
     Route: 048
     Dates: start: 20090123, end: 20090203
  4. MEPTIN [Suspect]
     Indication: COUGH
     Dosage: 11.6MCG THREE TIMES PER DAY
     Route: 065
     Dates: start: 20090123, end: 20090203
  5. ZITHROMAX [Suspect]
     Indication: COUGH
     Dosage: 210MG PER DAY
     Route: 048
     Dates: start: 20090123, end: 20090123

REACTIONS (3)
  - ABNORMAL BEHAVIOUR [None]
  - HALLUCINATION [None]
  - HALLUCINATION, VISUAL [None]
